FAERS Safety Report 25854668 (Version 2)
Quarter: 2025Q4

REPORT INFORMATION
  Report Type: Spontaneous
  Country: EU (occurrence: EU)
  Receive Date: 20250927
  Receipt Date: 20251222
  Transmission Date: 20260118
  Serious: Yes (Other)
  Sender: SANOFI AVENTIS
  Company Number: EU-BIOVITRUM-2025-ES-012991

PATIENT
  Sex: Male

DRUGS (22)
  1. EFANESOCTOCOG ALFA [Suspect]
     Active Substance: EFANESOCTOCOG ALFA
     Indication: Factor VIII deficiency
     Dosage: 50 IU/KG
     Dates: start: 2024
  2. EFANESOCTOCOG ALFA [Suspect]
     Active Substance: EFANESOCTOCOG ALFA
     Dosage: UNK
     Dates: start: 20240807
  3. EFANESOCTOCOG ALFA [Suspect]
     Active Substance: EFANESOCTOCOG ALFA
     Dosage: PROPHYLACTIC DOSE OF ALTUVOC 3000
     Dates: start: 20250917
  4. EFANESOCTOCOG ALFA [Suspect]
     Active Substance: EFANESOCTOCOG ALFA
     Dosage: 50 IU/KG ((3,000 UI)
     Dates: start: 20250919
  5. ELOCTA [Suspect]
     Active Substance: EFMOROCTOCOG ALFA
     Indication: Product used for unknown indication
     Dosage: 3,000/2.5 DAYS
     Dates: start: 202310
  6. ELOCTA [Suspect]
     Active Substance: EFMOROCTOCOG ALFA
     Indication: Product used for unknown indication
     Dosage: 3,000/2.5 DAYS
     Dates: start: 202310
  7. ELOCTA [Suspect]
     Active Substance: EFMOROCTOCOG ALFA
     Dosage: 2,000/2.5
     Dates: start: 202310
  8. ELOCTA [Suspect]
     Active Substance: EFMOROCTOCOG ALFA
     Dosage: 2,000/2.5
     Dates: start: 202310
  9. ELOCTA [Suspect]
     Active Substance: EFMOROCTOCOG ALFA
     Dosage: 2000 IU, Q3D
     Dates: start: 20240719
  10. ELOCTA [Suspect]
     Active Substance: EFMOROCTOCOG ALFA
     Dosage: 2000 IU, Q3D
     Dates: start: 20240719
  11. ELOCTA [Suspect]
     Active Substance: EFMOROCTOCOG ALFA
     Dosage: 2000 UI  (22H, IN ER)
     Dates: start: 20250527
  12. ELOCTA [Suspect]
     Active Substance: EFMOROCTOCOG ALFA
     Dosage: 2000 UI  (22H, IN ER)
     Dates: start: 20250527
  13. ELOCTA [Suspect]
     Active Substance: EFMOROCTOCOG ALFA
     Dosage: 2000 UI  (22H)
     Dates: start: 20250528
  14. ELOCTA [Suspect]
     Active Substance: EFMOROCTOCOG ALFA
     Dosage: 2000 UI  (22H)
     Dates: start: 20250528
  15. ELOCTA [Suspect]
     Active Substance: EFMOROCTOCOG ALFA
     Dosage: 2000 IU, QD  (AT HOME)
     Dates: start: 20250530, end: 20250602
  16. ELOCTA [Suspect]
     Active Substance: EFMOROCTOCOG ALFA
     Dosage: 2000 IU, QD  (AT HOME)
     Dates: start: 20250530, end: 20250602
  17. EMICIZUMAB [Suspect]
     Active Substance: EMICIZUMAB
     Indication: Product used for unknown indication
     Dosage: 150 MG/ML (VIAL OF 60MG/0.3ML), QOW
     Dates: start: 20231220
  18. ACETAMINOPHEN\TRAMADOL [Concomitant]
     Active Substance: ACETAMINOPHEN\TRAMADOL
     Indication: Pain
     Dosage: UNK UNK, Q8H (IF NEEDED FOR PAIN, BUT POOR TOLERANCE AND NOT USUALLY TAKEN - NUMBNESS)
  19. METAMIZOLE [Concomitant]
     Active Substance: METAMIZOLE
     Indication: Pain
     Dosage: 575 (UNITS NOT PROVIDED), Q8H
  20. CELECOXIB [Concomitant]
     Active Substance: CELECOXIB
     Indication: Product used for unknown indication
     Dosage: 200 MG, QD
  21. FENTANYL [Concomitant]
     Active Substance: FENTANYL
     Indication: Product used for unknown indication
     Dosage: 12.5 UG, Q3D
     Dates: start: 20250926
  22. ACETAMINOPHEN [Concomitant]
     Active Substance: ACETAMINOPHEN
     Indication: Product used for unknown indication
     Dosage: 1 G, Q8H

REACTIONS (2)
  - Haemarthrosis [Unknown]
  - Haematoma muscle [Unknown]

NARRATIVE: CASE EVENT DATE: 20250916
